FAERS Safety Report 4756731-7 (Version None)
Quarter: 2005Q3

REPORT INFORMATION
  Report Type: 
  Country: None (occurrence: None)
  Receive Date: 20050830
  Receipt Date: 20050819
  Transmission Date: 20060218
  Serious: Yes (Hospitalization)
  Sender: FDA-Public Use
  Company Number: US-MERCK-0508USA03414

PATIENT
  Age: 50 Year
  Sex: Female
  Weight: 68 kg

DRUGS (11)
  1. VIOXX [Suspect]
     Route: 048
     Dates: start: 20030501, end: 20030801
  2. ZYBAN [Concomitant]
     Route: 065
  3. ALPHAGAN [Concomitant]
     Route: 065
  4. LEVOTHYROXINE SODIUM [Concomitant]
     Route: 065
  5. GLUCOPHAGE [Concomitant]
     Route: 065
  6. CLOBETASOL PROPIONATE [Concomitant]
     Route: 065
  7. DOCUSATE SODIUM [Concomitant]
     Route: 065
  8. ZOFRAN [Concomitant]
     Route: 065
  9. MONOPRIL [Concomitant]
     Route: 065
  10. METOPROLOL [Concomitant]
     Route: 065
  11. [THERAPY UNSPECIFIED] [Concomitant]
     Route: 065

REACTIONS (7)
  - CEREBELLAR HAEMORRHAGE [None]
  - CONSTIPATION [None]
  - GAIT DISTURBANCE [None]
  - HYDROCEPHALUS [None]
  - INSOMNIA [None]
  - PNEUMONIA ASPIRATION [None]
  - VOMITING [None]
